FAERS Safety Report 18511655 (Version 2)
Quarter: 2021Q4

REPORT INFORMATION
  Report Type: Report from Study
  Country: MX (occurrence: MX)
  Receive Date: 20201117
  Receipt Date: 20211122
  Transmission Date: 20220303
  Serious: Yes (Life-Threatening, Hospitalization)
  Sender: FDA-Public Use
  Company Number: MX-NOVARTISPH-NVSC2020MX305163

PATIENT
  Sex: Female
  Weight: 62 kg

DRUGS (2)
  1. TASIGNA [Suspect]
     Active Substance: NILOTINIB
     Indication: Chronic myeloid leukaemia
     Dosage: 400 MG, Q12H
     Route: 048
     Dates: start: 2019
  2. TASIGNA [Suspect]
     Active Substance: NILOTINIB
     Dosage: UNK
     Route: 048

REACTIONS (8)
  - Renal disorder [Unknown]
  - Procedural pain [Unknown]
  - Pyrexia [Unknown]
  - Abscess [Unknown]
  - Post procedural complication [Recovered/Resolved]
  - Malaise [Unknown]
  - Blood potassium increased [Unknown]
  - Enzyme level increased [Recovering/Resolving]
